FAERS Safety Report 8236241-5 (Version None)
Quarter: 2012Q1

REPORT INFORMATION
  Report Type: 
  Country: None (occurrence: None)
  Receive Date: 20120327
  Receipt Date: 20120313
  Transmission Date: 20120608
  Serious: Yes (Other)
  Sender: FDA-Public Use
  Company Number: PHHY2012DE022841

PATIENT
  Sex: Female

DRUGS (1)
  1. SANDIMMUNE [Suspect]
     Dates: start: 20010101, end: 20040101

REACTIONS (2)
  - CEREBROVASCULAR ACCIDENT [None]
  - SUDDEN HEARING LOSS [None]
